FAERS Safety Report 10089706 (Version 2)
Quarter: 2014Q2

REPORT INFORMATION
  Report Type: Report from Study
  Country: CA (occurrence: CA)
  Receive Date: 20140421
  Receipt Date: 20140616
  Transmission Date: 20141212
  Serious: Yes (Other)
  Sender: FDA-Public Use
  Company Number: CA-JNJFOC-20140410524

PATIENT
  Age: 56 Year
  Sex: Male
  Weight: 96 kg

DRUGS (5)
  1. REMICADE [Suspect]
     Indication: RHEUMATOID ARTHRITIS
     Route: 042
     Dates: start: 20100729
  2. PREDNISONE [Concomitant]
     Dosage: TO BE TAPERED DOWN STARTING A WEEK LATER
     Route: 048
  3. SOLUCORTEF [Concomitant]
     Route: 042
  4. TYLENOL [Concomitant]
     Route: 048
  5. CELEBREX [Concomitant]
     Route: 065

REACTIONS (4)
  - Hand fracture [Recovering/Resolving]
  - Haematoma [Recovering/Resolving]
  - Cellulitis [Unknown]
  - Road traffic accident [Recovering/Resolving]
